FAERS Safety Report 5870695-4 (Version None)
Quarter: 2008Q3

REPORT INFORMATION
  Report Type: 
  Country: None (occurrence: None)
  Receive Date: 20080904
  Receipt Date: 20080828
  Transmission Date: 20090109
  Serious: Yes (Other)
  Sender: FDA-Public Use
  Company Number: B0535463A

PATIENT
  Sex: Female

DRUGS (1)
  1. NIQUITIN CQ 21MG [Suspect]
     Indication: DRUG USE FOR UNKNOWN INDICATION
     Route: 062

REACTIONS (2)
  - BLINDNESS [None]
  - MIGRAINE [None]
